FAERS Safety Report 14740742 (Version 1)
Quarter: 2018Q2

REPORT INFORMATION
  Report Type: Spontaneous
  Country: CA (occurrence: CA)
  Receive Date: 20180410
  Receipt Date: 20180410
  Transmission Date: 20180711
  Serious: Yes (Death)
  Sender: FDA-Public Use
  Company Number: CA-PFIZER INC-2017262544

PATIENT
  Age: 56 Year
  Sex: Male

DRUGS (4)
  1. SUTENT [Suspect]
     Active Substance: SUNITINIB MALATE
     Dosage: 50 MG, CYCLIC (DAILY 14 DAYS AND 14 DAYS OFF) (4 WEEKS ON, 2 WEEKS OFF)
     Route: 048
     Dates: start: 20170519, end: 20170606
  2. SUTENT [Suspect]
     Active Substance: SUNITINIB MALATE
     Dosage: 37.5 MG, CYCLIC (DAILY 14 DAYS AND 1 WEEK OFF)
     Route: 048
     Dates: start: 20170706
  3. DILAUDID [Concomitant]
     Active Substance: HYDROMORPHONE HYDROCHLORIDE
     Dosage: 2 MG, UNK
  4. SUTENT [Suspect]
     Active Substance: SUNITINIB MALATE
     Dosage: 25 MG, CYCLIC (DAILY 14 DAYS AND 1 WEEK OFF)
     Route: 048
     Dates: start: 20170614

REACTIONS (2)
  - Death [Fatal]
  - Malaise [Unknown]
